FAERS Safety Report 19218928 (Version 1)
Quarter: 2021Q2

REPORT INFORMATION
  Report Type: Spontaneous
  Country: US (occurrence: US)
  Receive Date: 20210505
  Receipt Date: 20210505
  Transmission Date: 20210717
  Serious: No
  Sender: FDA-Public Use
  Company Number: US-ROCHE-2587298

PATIENT
  Sex: Female

DRUGS (6)
  1. DIFLUCAN [Concomitant]
     Active Substance: FLUCONAZOLE
  2. ESBRIET [Suspect]
     Active Substance: PIRFENIDONE
     Route: 048
     Dates: start: 20200602
  3. ESBRIET [Suspect]
     Active Substance: PIRFENIDONE
     Route: 065
  4. ESBRIET [Suspect]
     Active Substance: PIRFENIDONE
     Route: 048
     Dates: start: 202002
  5. FLAGYL [Concomitant]
     Active Substance: METRONIDAZOLE\METRONIDAZOLE HYDROCHLORIDE
  6. ESBRIET [Suspect]
     Active Substance: PIRFENIDONE
     Indication: IDIOPATHIC PULMONARY FIBROSIS
     Route: 065
     Dates: start: 20200221

REACTIONS (8)
  - Hypotension [Unknown]
  - Flushing [Unknown]
  - Feeling hot [Unknown]
  - Fatigue [Unknown]
  - Taste disorder [Unknown]
  - Insomnia [Unknown]
  - Vaginal infection [Unknown]
  - Decreased appetite [Unknown]
